FAERS Safety Report 7611863-0 (Version None)
Quarter: 2011Q3

REPORT INFORMATION
  Report Type: 
  Country: None (occurrence: None)
  Receive Date: 20110715
  Receipt Date: 20110711
  Transmission Date: 20111222
  Serious: Yes (Other)
  Sender: FDA-Public Use
  Company Number: US-TEVA-290333USA

PATIENT
  Age: 13 Month
  Sex: Male

DRUGS (1)
  1. GLIPIZIDE [Suspect]

REACTIONS (4)
  - HYPOGLYCAEMIA [None]
  - ACCIDENTAL OVERDOSE [None]
  - CONVULSION [None]
  - TOXICITY TO VARIOUS AGENTS [None]
